FAERS Safety Report 7004255-9 (Version None)
Quarter: 2010Q3

REPORT INFORMATION
  Report Type: 
  Country: None (occurrence: None)
  Receive Date: 20100920
  Receipt Date: 20100225
  Transmission Date: 20110219
  Serious: No
  Sender: FDA-Public Use
  Company Number: US-WYE-H13881110

PATIENT
  Sex: Female
  Weight: 74.91 kg

DRUGS (5)
  1. PRISTIQ [Suspect]
     Indication: DEPRESSION
     Route: 048
     Dates: start: 20090601, end: 20100222
  2. VICODIN [Concomitant]
  3. ATIVAN [Concomitant]
  4. ADDERALL 10 [Concomitant]
  5. LOTENSIN [Concomitant]

REACTIONS (4)
  - CRYING [None]
  - DIZZINESS [None]
  - DRUG WITHDRAWAL SYNDROME [None]
  - HYPERHIDROSIS [None]
